FAERS Safety Report 6928318-9 (Version None)
Quarter: 2010Q3

REPORT INFORMATION
  Report Type: 
  Country: None (occurrence: None)
  Receive Date: 20100812
  Receipt Date: 20100806
  Transmission Date: 20110219
  Serious: Yes (Hospitalization)
  Sender: FDA-Public Use
  Company Number: 2010SP036843

PATIENT
  Age: 54 Year
  Sex: Female
  Weight: 54 kg

DRUGS (5)
  1. PEG-INTRON [Suspect]
     Indication: HEPATITIS C
     Dosage: 60 MCG;QW;SC, 30 MCG;QW;SC, 40 MCG;QW;SC, 50 MCG;QW;SC
     Route: 058
     Dates: start: 20091111, end: 20091111
  2. PEG-INTRON [Suspect]
     Indication: HEPATITIS C
     Dosage: 60 MCG;QW;SC, 30 MCG;QW;SC, 40 MCG;QW;SC, 50 MCG;QW;SC
     Route: 058
     Dates: start: 20091118, end: 20091118
  3. PEG-INTRON [Suspect]
     Indication: HEPATITIS C
     Dosage: 60 MCG;QW;SC, 30 MCG;QW;SC, 40 MCG;QW;SC, 50 MCG;QW;SC
     Route: 058
     Dates: start: 20091125, end: 20091125
  4. PEG-INTRON [Suspect]
     Indication: HEPATITIS C
     Dosage: 60 MCG;QW;SC, 30 MCG;QW;SC, 40 MCG;QW;SC, 50 MCG;QW;SC
     Route: 058
     Dates: start: 20091202, end: 20100106
  5. REBETOL [Suspect]
     Indication: HEPATITIS C
     Dosage: 400 MG;QD;PO
     Route: 048
     Dates: start: 20091111, end: 20100112

REACTIONS (7)
  - IMMUNE SYSTEM DISORDER [None]
  - INFECTIVE SPONDYLITIS [None]
  - LUMBAR SPINAL STENOSIS [None]
  - MONOPLEGIA [None]
  - SPINAL COLUMN STENOSIS [None]
  - STAPHYLOCOCCUS TEST POSITIVE [None]
  - TENDONITIS [None]
